FAERS Safety Report 9508833 (Version 2)
Quarter: 2013Q3

REPORT INFORMATION
  Report Type: Spontaneous
  Country: US (occurrence: US)
  Receive Date: 20130909
  Receipt Date: 20130909
  Transmission Date: 20140515
  Serious: No
  Sender: FDA-Public Use
  Company Number: US-BRISTOL-MYERS SQUIBB COMPANY-17408386

PATIENT
  Sex: Female

DRUGS (1)
  1. ABILIFY TABS [Suspect]
     Dosage: INTIAL DOSE 2.5 MG AND THEN INCREASED TO 5 MG

REACTIONS (2)
  - Headache [Unknown]
  - Drug ineffective [Unknown]
